FAERS Safety Report 22287201 (Version 6)
Quarter: 2023Q2

REPORT INFORMATION
  Report Type: Spontaneous
  Country: US (occurrence: US)
  Receive Date: 20230505
  Receipt Date: 20230618
  Transmission Date: 20230722
  Serious: Yes (Other)
  Sender: FDA-Public Use
  Company Number: US-JNJFOC-20230504222

PATIENT
  Age: 77 Year
  Sex: Female
  Weight: 54.48 kg

DRUGS (2)
  1. SIMPONI [Suspect]
     Active Substance: GOLIMUMAB
     Indication: Product used for unknown indication
     Route: 058
     Dates: start: 2010
  2. SIMPONI [Suspect]
     Active Substance: GOLIMUMAB
     Dosage: 50.00 MG / 0.50 ML
     Route: 058
     Dates: start: 2014

REACTIONS (3)
  - Spinal fracture [Unknown]
  - Device deployment issue [Unknown]
  - Product dose omission issue [Unknown]

NARRATIVE: CASE EVENT DATE: 20220101
